FAERS Safety Report 25683829 (Version 1)
Quarter: 2025Q3

REPORT INFORMATION
  Report Type: Report from Study
  Country: EG (occurrence: EG)
  Receive Date: 20250814
  Receipt Date: 20250814
  Transmission Date: 20251020
  Serious: Yes (Hospitalization)
  Sender: BIOGEN
  Company Number: EG-BIOGEN-2025BI01320746

PATIENT
  Age: 25 Year
  Sex: Female
  Weight: 70 kg

DRUGS (3)
  1. TYSABRI [Suspect]
     Active Substance: NATALIZUMAB
     Indication: Multiple sclerosis
     Route: 050
     Dates: start: 2019
  2. TYSABRI [Suspect]
     Active Substance: NATALIZUMAB
     Dosage: PER COMMITTEE DECISION
     Route: 050
     Dates: start: 202501
  3. CALCIUM [Concomitant]
     Active Substance: CALCIUM
     Indication: Bone disorder
     Route: 050

REACTIONS (5)
  - Pelvic fracture [Unknown]
  - Haemorrhage intracranial [Unknown]
  - Accident [Recovered/Resolved]
  - Rib fracture [Unknown]
  - Pleural effusion [Unknown]

NARRATIVE: CASE EVENT DATE: 20240807
